FAERS Safety Report 5525065-5 (Version None)
Quarter: 2007Q4

REPORT INFORMATION
  Report Type: 
  Country: None (occurrence: None)
  Receive Date: 20071119
  Receipt Date: 20071108
  Transmission Date: 20080405
  Serious: Yes (Hospitalization)
  Sender: FDA-Public Use
  Company Number: S07-USA-05869-01

PATIENT
  Age: 14 Year
  Sex: Female

DRUGS (3)
  1. LEXAPRO [Suspect]
     Indication: ANXIETY
     Dosage: 10 MG QD PO
     Route: 048
     Dates: start: 20071020, end: 20071028
  2. LEXAPRO [Suspect]
     Indication: ANXIETY
     Dosage: 10 MG QD PO
     Route: 048
     Dates: start: 20050101, end: 20071005
  3. LEXAPRO [Suspect]
     Indication: ANXIETY
     Dosage: 20 MG QD PO
     Route: 048
     Dates: start: 20071006, end: 20071019

REACTIONS (6)
  - CONVULSION [None]
  - DYSKINESIA [None]
  - FEELING COLD [None]
  - MUSCLE TWITCHING [None]
  - PANIC REACTION [None]
  - SEROTONIN SYNDROME [None]
